FAERS Safety Report 19750132 (Version 1)
Quarter: 2021Q3

REPORT INFORMATION
  Report Type: Spontaneous
  Country: US (occurrence: US)
  Receive Date: 20210824
  Receipt Date: 20210824
  Transmission Date: 20211014
  Serious: No
  Sender: FDA-Public Use
  Company Number: None

PATIENT
  Sex: Female

DRUGS (2)
  1. SEROQUEL [Suspect]
     Active Substance: QUETIAPINE FUMARATE
  2. GILENYA [Suspect]
     Active Substance: FINGOLIMOD HYDROCHLORIDE
     Indication: MULTIPLE SCLEROSIS
     Route: 048
     Dates: start: 20180524

REACTIONS (8)
  - Dizziness [None]
  - Dry mouth [None]
  - Muscle spasms [None]
  - Drug interaction [None]
  - Chest discomfort [None]
  - Anxiety [None]
  - Palpitations [None]
  - Spinal deformity [None]
